FAERS Safety Report 7912518-5 (Version None)
Quarter: 2011Q4

REPORT INFORMATION
  Report Type: 
  Country: None (occurrence: None)
  Receive Date: 20111114
  Receipt Date: 20111111
  Transmission Date: 20120403
  Serious: No
  Sender: FDA-Public Use
  Company Number: US-PFIZER INC-2011277251

PATIENT
  Sex: Male
  Weight: 73.923 kg

DRUGS (3)
  1. CHANTIX [Suspect]
     Dosage: 2 MG, 2X/DAY (TWO TABLETS OF 1 MG IN THE MORNING AND TWO TABLETS OF 1 MG IN THE EVENING)
     Route: 048
     Dates: start: 20111110
  2. PRAVASTATIN [Concomitant]
     Indication: BLOOD CHOLESTEROL INCREASED
     Dosage: UNK
  3. CHANTIX [Suspect]
     Indication: SMOKING CESSATION THERAPY
     Dosage: 0.5 MG, 1X/DAY
     Route: 048
     Dates: start: 20111102, end: 20111109

REACTIONS (2)
  - HYPERHIDROSIS [None]
  - VOMITING [None]
